FAERS Safety Report 5861078-1 (Version None)
Quarter: 2008Q3

REPORT INFORMATION
  Report Type: 
  Country: None (occurrence: None)
  Receive Date: 20080827
  Receipt Date: 20080212
  Transmission Date: 20090109
  Serious: No
  Sender: FDA-Public Use
  Company Number: US-ABBOTT-08P-163-0437757-00

PATIENT
  Sex: Female
  Weight: 49.94 kg

DRUGS (5)
  1. COATED PDS [Suspect]
     Indication: BLOOD CHOLESTEROL INCREASED
     Route: 048
     Dates: start: 20080204
  2. VALSARTAN [Concomitant]
     Indication: HYPERTENSION
     Route: 048
  3. AMLODIPINE [Concomitant]
     Indication: HYPERTENSION
     Route: 048
  4. ALPRAZOLAM [Concomitant]
     Indication: ANXIETY
     Route: 048
  5. ACETYLSALICYLIC ACID SRT [Concomitant]
     Indication: FLUSHING
     Route: 048
     Dates: start: 20080204

REACTIONS (2)
  - FEELING HOT [None]
  - PRURITUS [None]
